FAERS Safety Report 16965076 (Version 1)
Quarter: 2019Q4

REPORT INFORMATION
  Report Type: Spontaneous
  Country: ES (occurrence: ES)
  Receive Date: 20191028
  Receipt Date: 20191028
  Transmission Date: 20200122
  Serious: Yes (Hospitalization, Other)
  Sender: FDA-Public Use
  Company Number: ES-SCIEGEN PHARMACEUTICALS INC-2019SCILIT00292

PATIENT
  Age: 16 Year
  Sex: Male

DRUGS (10)
  1. METFORMIN HYDROCHLORIDETABLETS [Suspect]
     Active Substance: METFORMIN HYDROCHLORIDE
  2. IBUPROFEN. [Suspect]
     Active Substance: IBUPROFEN
  3. OMEPRAZOLE. [Suspect]
     Active Substance: OMEPRAZOLE
  4. DIAZEPAM. [Suspect]
     Active Substance: DIAZEPAM
  5. PARACETAMOL [Suspect]
     Active Substance: ACETAMINOPHEN
  6. TRAMADOL. [Suspect]
     Active Substance: TRAMADOL
  7. PREDNISONE. [Suspect]
     Active Substance: PREDNISONE
  8. VALSARTAN. [Suspect]
     Active Substance: VALSARTAN
  9. ROBAXISAL [Suspect]
     Active Substance: ASPIRIN\METHOCARBAMOL
  10. VENLAFAXINE [Suspect]
     Active Substance: VENLAFAXINE HYDROCHLORIDE

REACTIONS (5)
  - Toxicity to various agents [Recovered/Resolved]
  - Renal failure [Recovering/Resolving]
  - Suicidal ideation [Unknown]
  - Poisoning deliberate [Unknown]
  - Lactic acidosis [Recovering/Resolving]
